FAERS Safety Report 4460144-5 (Version None)
Quarter: 2004Q3

REPORT INFORMATION
  Report Type: 
  Country: None (occurrence: None)
  Receive Date: 20040928
  Receipt Date: 20040102
  Transmission Date: 20050211
  Serious: No
  Sender: FDA-Public Use
  Company Number: US-GLAXOSMITHKLINE-A0490989A

PATIENT
  Sex: Female

DRUGS (2)
  1. SEREVENT [Suspect]
     Indication: ILL-DEFINED DISORDER
     Route: 055
  2. ADVAIR DISKUS 100/50 [Suspect]
     Indication: ILL-DEFINED DISORDER
     Route: 055

REACTIONS (2)
  - COUGH [None]
  - SPEECH DISORDER [None]
